FAERS Safety Report 7114745-6 (Version None)
Quarter: 2010Q4

REPORT INFORMATION
  Report Type: 
  Country: None (occurrence: None)
  Receive Date: 20101122
  Receipt Date: 20101110
  Transmission Date: 20110411
  Serious: No
  Sender: FDA-Public Use
  Company Number: US-BIOGENIDEC-2010BI028351

PATIENT
  Sex: Female

DRUGS (1)
  1. TYSABRI [Suspect]
     Indication: MULTIPLE SCLEROSIS
     Route: 042
     Dates: start: 20081210, end: 20100623

REACTIONS (16)
  - BRONCHITIS [None]
  - DEPRESSION [None]
  - DIZZINESS [None]
  - FEAR [None]
  - FIBROMYALGIA [None]
  - HYPOAESTHESIA [None]
  - IMMUNOSUPPRESSION [None]
  - NYSTAGMUS [None]
  - OBSESSIVE-COMPULSIVE DISORDER [None]
  - OSTEOARTHRITIS [None]
  - SEROTONIN SYNDROME [None]
  - SKIN DISORDER [None]
  - SKIN PAPILLOMA [None]
  - SLEEP DISORDER [None]
  - STRESS [None]
  - VISION BLURRED [None]
